FAERS Safety Report 7712252-0 (Version None)
Quarter: 2011Q3

REPORT INFORMATION
  Report Type: 
  Country: None (occurrence: None)
  Receive Date: 20110826
  Receipt Date: 20110820
  Transmission Date: 20111222
  Serious: Yes (Other)
  Sender: FDA-Public Use
  Company Number: US-PFIZER INC-2011194113

PATIENT
  Age: 62 Year
  Sex: Female

DRUGS (1)
  1. EFFEXOR XR [Suspect]
     Dosage: UNK

REACTIONS (3)
  - MENTAL IMPAIRMENT [None]
  - SUICIDAL IDEATION [None]
  - CORONARY ARTERY DISEASE [None]
